FAERS Safety Report 9144053 (Version 1)
Quarter: 2013Q1

REPORT INFORMATION
  Report Type: Spontaneous
  Country: VE (occurrence: VE)
  Receive Date: 20130306
  Receipt Date: 20130306
  Transmission Date: 20140127
  Serious: Yes (Hospitalization, Other)
  Sender: FDA-Public Use
  Company Number: VE-ELI_LILLY_AND_COMPANY-VE201303000215

PATIENT
  Age: 1 Day
  Sex: Female

DRUGS (6)
  1. HUMALOG MIX75/25 [Suspect]
     Indication: GESTATIONAL DIABETES
     Dosage: 10 IU, BID
     Route: 064
     Dates: end: 20121227
  2. HUMALOG 25% LISPRO, 75% NPL [Suspect]
     Indication: GESTATIONAL DIABETES
     Dosage: 10 IU, BID
     Route: 064
     Dates: end: 20121227
  3. AMLODIPINE [Concomitant]
     Dosage: UNK
     Route: 064
     Dates: end: 20121227
  4. AMLODIPINE [Concomitant]
     Dosage: UNK
     Route: 064
     Dates: end: 20121227
  5. VITAMINS [Concomitant]
     Dosage: UNK
     Route: 064
     Dates: end: 20121227
  6. VITAMINS [Concomitant]
     Dosage: UNK
     Route: 064
     Dates: end: 20121227

REACTIONS (3)
  - Neonatal respiratory distress syndrome [Recovered/Resolved]
  - Premature baby [Recovered/Resolved]
  - Foetal exposure during pregnancy [Recovered/Resolved]
